FAERS Safety Report 9293784 (Version 1)
Quarter: 2013Q2

REPORT INFORMATION
  Report Type: Report from Study
  Country: VE (occurrence: VE)
  Receive Date: 20130516
  Receipt Date: 20130516
  Transmission Date: 20140414
  Serious: Yes (Other)
  Sender: FDA-Public Use
  Company Number: VE-ABBOTT-13P-178-1089612-00

PATIENT
  Age: 57 Year
  Sex: Female
  Weight: 83 kg

DRUGS (2)
  1. HUMIRA [Suspect]
     Indication: PSORIATIC ARTHROPATHY
     Route: 058
     Dates: start: 20111029, end: 20130509
  2. ISONIACIDA [Concomitant]
     Indication: TUBERCULOSIS
     Route: 048
     Dates: start: 201209

REACTIONS (3)
  - Tuberculin test positive [Recovering/Resolving]
  - Skin injury [Not Recovered/Not Resolved]
  - Lymphadenopathy [Not Recovered/Not Resolved]
